FAERS Safety Report 15300703 (Version 1)
Quarter: 2018Q3

REPORT INFORMATION
  Report Type: Spontaneous
  Country: US (occurrence: US)
  Receive Date: 20180809
  Receipt Date: 20180809
  Transmission Date: 20181010
  Serious: Yes (Life-Threatening, Hospitalization, Other)
  Sender: FDA-Public Use
  Company Number: None

PATIENT
  Age: 31 Year
  Sex: Female
  Weight: 113.85 kg

DRUGS (12)
  1. DULOXETINE BID [Concomitant]
     Dates: start: 20160705, end: 20180809
  2. OXYCODONE?APAP PRN [Concomitant]
     Dates: start: 20160705, end: 20180809
  3. VITAMIN C DAILY [Concomitant]
     Dates: start: 20160705, end: 20180809
  4. RITUXAN [Suspect]
     Active Substance: RITUXIMAB
     Indication: RHEUMATOID ARTHRITIS
     Dosage: ?          OTHER FREQUENCY:EVERY 6 MONTHS;?
     Route: 041
     Dates: start: 20170507, end: 20180618
  5. HYDROXYCHLOROQUINE TID [Concomitant]
     Dates: start: 20160705, end: 20180809
  6. INSULIN LISPRO PRN [Concomitant]
     Dates: start: 20160705, end: 20180809
  7. NARATRIPTAN PRN [Concomitant]
     Dates: start: 20160705, end: 20180809
  8. OMEPRAZOLE DAILY [Concomitant]
     Dates: start: 20160705, end: 20180809
  9. ENTANERCEPT QWEEK [Concomitant]
     Dates: start: 20160705, end: 20180809
  10. ETODOLAC ER BID [Concomitant]
     Dates: start: 20160705, end: 20180809
  11. GABAPENTIN TID [Concomitant]
     Dates: start: 20160705, end: 20180809
  12. FERROUS SULFATE DAILY [Concomitant]
     Dates: start: 20160705, end: 20180809

REACTIONS (2)
  - Infusion related reaction [None]
  - Anaphylactic reaction [None]

NARRATIVE: CASE EVENT DATE: 20180618
